FAERS Safety Report 12687452 (Version 6)
Quarter: 2018Q3

REPORT INFORMATION
  Report Type: Report from Study
  Country: JP (occurrence: JP)
  Receive Date: 20160826
  Receipt Date: 20180708
  Transmission Date: 20181010
  Serious: Yes (Other)
  Sender: FDA-Public Use
  Company Number: JP-ALEXION PHARMACEUTICALS INC.-A201603189

PATIENT
  Age: 31 Year
  Sex: Male
  Weight: 62 kg

DRUGS (25)
  1. SOLIRIS [Suspect]
     Active Substance: ECULIZUMAB
     Dosage: 900 MG, Q3W
     Route: 042
     Dates: start: 20160527, end: 20160615
  2. PREDONINE [Concomitant]
     Active Substance: PREDNISOLONE
     Indication: PAROXYSMAL NOCTURNAL HAEMOGLOBINURIA
     Dosage: 6 DF, DAILY
     Route: 065
     Dates: start: 20160720, end: 20160720
  3. PREDONINE [Concomitant]
     Active Substance: PREDNISOLONE
     Indication: COLITIS ULCERATIVE
     Dosage: 6 DF, UNK
     Route: 065
     Dates: start: 20160801, end: 20160801
  4. RINDERON V [Concomitant]
     Active Substance: BETAMETHASONE VALERATE
     Indication: PAROXYSMAL NOCTURNAL HAEMOGLOBINURIA
     Dosage: 1 MG, DAILY
     Route: 065
     Dates: start: 20160916, end: 20180117
  5. SOLIRIS [Suspect]
     Active Substance: ECULIZUMAB
     Dosage: 900 MG, Q2W
     Route: 042
     Dates: end: 20160205
  6. SOLIRIS [Suspect]
     Active Substance: ECULIZUMAB
     Dosage: 900 MG, Q2W
     Route: 042
     Dates: start: 20160427, end: 20160527
  7. SOLIRIS [Suspect]
     Active Substance: ECULIZUMAB
     Dosage: 900 MG, Q3W
     Route: 042
     Dates: start: 20160224, end: 20160427
  8. SOLIRIS [Suspect]
     Active Substance: ECULIZUMAB
     Dosage: 900 MG, Q3W
     Route: 042
     Dates: start: 20170113
  9. PREDONEMA [Concomitant]
     Active Substance: PREDNISOLONE SODIUM PHOSPHATE
     Indication: PAROXYSMAL NOCTURNAL HAEMOGLOBINURIA
     Dosage: 20 MG, DAILY
     Route: 065
     Dates: start: 20160711, end: 20170222
  10. SOLIRIS [Suspect]
     Active Substance: ECULIZUMAB
     Dosage: 900 MG, Q3W
     Route: 042
     Dates: start: 20160701, end: 20160923
  11. DAIPHEN [Concomitant]
     Active Substance: SULFAMETHOXAZOLE\TRIMETHOPRIM
     Indication: PRODUCT USED FOR UNKNOWN INDICATION
     Dosage: 1 DF, DAILY
     Route: 065
     Dates: start: 20160720
  12. SOLIRIS [Suspect]
     Active Substance: ECULIZUMAB
     Indication: PAROXYSMAL NOCTURNAL HAEMOGLOBINURIA
     Dosage: 600 MG, QW
     Route: 042
     Dates: start: 20130906, end: 20130927
  13. SOLIRIS [Suspect]
     Active Substance: ECULIZUMAB
     Dosage: 900 MG, UNK
     Route: 042
     Dates: start: 20161209, end: 20161227
  14. PREDONINE [Concomitant]
     Active Substance: PREDNISOLONE
     Dosage: 6 DF, UNK
     Route: 065
     Dates: start: 20161027, end: 20161027
  15. PREDONINE [Concomitant]
     Active Substance: PREDNISOLONE
     Dosage: 6 DF, UNK
     Route: 065
     Dates: start: 20161109, end: 20161109
  16. SOLIRIS [Suspect]
     Active Substance: ECULIZUMAB
     Dosage: 900 MG, Q3W
     Route: 042
     Dates: start: 20161011, end: 20161122
  17. SOLIRIS [Suspect]
     Active Substance: ECULIZUMAB
     Dosage: 900 MG, Q2W
     Route: 042
     Dates: start: 20160615, end: 20160701
  18. SOLIRIS [Suspect]
     Active Substance: ECULIZUMAB
     Dosage: 900 MG, UNK
     Route: 042
     Dates: start: 20160923, end: 20161011
  19. SOLIRIS [Suspect]
     Active Substance: ECULIZUMAB
     Dosage: 900 MG, UNK
     Route: 042
     Dates: start: 20161122, end: 20161209
  20. SOLIRIS [Suspect]
     Active Substance: ECULIZUMAB
     Dosage: 900 MG, UNK
     Route: 042
     Dates: start: 20161227, end: 20170113
  21. SOLIRIS [Suspect]
     Active Substance: ECULIZUMAB
     Dosage: UNK
  22. PREDONINE [Concomitant]
     Active Substance: PREDNISOLONE
     Dosage: 6 DF, UNK
     Route: 065
     Dates: start: 20160816, end: 20160816
  23. PREDONINE [Concomitant]
     Active Substance: PREDNISOLONE
     Dosage: 6 DF, UNK
     Route: 065
     Dates: start: 20160825, end: 20160825
  24. MIYA?BM [Concomitant]
     Active Substance: CLOSTRIDIUM BUTYRICUM SPORES STRAIN M-55
     Indication: PRODUCT USED FOR UNKNOWN INDICATION
     Dosage: 6 DF, DAILY
     Route: 065
     Dates: start: 20160926
  25. SOLIRIS [Suspect]
     Active Substance: ECULIZUMAB
     Dosage: 900 MG, Q2W
     Route: 042
     Dates: start: 20131004

REACTIONS (3)
  - Bronchitis [Recovered/Resolved]
  - Colitis ulcerative [Recovering/Resolving]
  - Inappropriate schedule of drug administration [Not Recovered/Not Resolved]

NARRATIVE: CASE EVENT DATE: 20151104
